FAERS Safety Report 10099073 (Version 2)
Quarter: 2014Q2

REPORT INFORMATION
  Report Type: Spontaneous
  Country: US (occurrence: US)
  Receive Date: 20140423
  Receipt Date: 20140423
  Transmission Date: 20141212
  Serious: No
  Sender: FDA-Public Use
  Company Number: US-GILEAD-2012-0066365

PATIENT
  Sex: Female

DRUGS (2)
  1. LETAIRIS [Suspect]
     Indication: PULMONARY ARTERIAL HYPERTENSION
     Route: 048
     Dates: start: 20110201, end: 20121203
  2. LETAIRIS [Suspect]
     Indication: IDIOPATHIC PULMONARY FIBROSIS

REACTIONS (1)
  - Chronic obstructive pulmonary disease [Unknown]
